FAERS Safety Report 25043683 (Version 2)
Quarter: 2025Q1

REPORT INFORMATION
  Report Type: Spontaneous
  Country: US (occurrence: US)
  Receive Date: 20250306
  Receipt Date: 20250310
  Transmission Date: 20250409
  Serious: No
  Sender: ALEXION PHARMACEUTICALS
  Company Number: US-AstraZeneca-CH-00820048AP

PATIENT

DRUGS (1)
  1. TEZSPIRE [Suspect]
     Active Substance: TEZEPELUMAB-EKKO
     Route: 065

REACTIONS (5)
  - Injection site bruising [Unknown]
  - Injection site pain [Unknown]
  - Incorrect dose administered by device [Unknown]
  - Accidental underdose [Unknown]
  - Device leakage [Unknown]
